FAERS Safety Report 16130627 (Version 1)
Quarter: 2019Q1

REPORT INFORMATION
  Report Type: Spontaneous
  Country: US (occurrence: US)
  Receive Date: 20190328
  Receipt Date: 20190328
  Transmission Date: 20190418
  Serious: No
  Sender: FDA-Public Use
  Company Number: US-TEVA-2019-US-1031179

PATIENT
  Age: 67 Year
  Sex: Female
  Weight: 50 kg

DRUGS (12)
  1. LOMOTIL [Concomitant]
     Active Substance: ATROPINE SULFATE\DIPHENOXYLATE HYDROCHLORIDE
  2. ZOLOFT [Concomitant]
     Active Substance: SERTRALINE HYDROCHLORIDE
  3. PROAIR HFA [Suspect]
     Active Substance: ALBUTEROL SULFATE
     Indication: ASTHMA
     Route: 065
  4. IPRATROPIUM BROMIDE NASAL SOLUTION [Concomitant]
     Active Substance: IPRATROPIUM BROMIDE
     Route: 045
  5. QNASL [Suspect]
     Active Substance: BECLOMETHASONE DIPROPIONATE
     Route: 065
  6. ALLEGRA-D [Concomitant]
     Active Substance: FEXOFENADINE\PSEUDOEPHEDRINE
  7. QVAR [Suspect]
     Active Substance: BECLOMETHASONE DIPROPIONATE
     Indication: ASTHMA
     Dosage: PRESCRIBED 2 PUFFS TWICE DAILY
     Route: 065
     Dates: start: 201902
  8. QVAR [Suspect]
     Active Substance: BECLOMETHASONE DIPROPIONATE
     Dosage: IN APR-2019 OR MAY-2019; DAILY
     Route: 065
  9. ZENPEP [Concomitant]
     Active Substance: PANCRELIPASE AMYLASE\PANCRELIPASE LIPASE\PANCRELIPASE PROTEASE
  10. ALLEGRA [Concomitant]
     Active Substance: FEXOFENADINE HYDROCHLORIDE
  11. PREVALITE [Concomitant]
     Active Substance: CHOLESTYRAMINE
  12. OLOPATADINE. [Concomitant]
     Active Substance: OLOPATADINE
     Route: 045

REACTIONS (1)
  - Nasopharyngitis [Unknown]

NARRATIVE: CASE EVENT DATE: 20190217
